FAERS Safety Report 5268417-3 (Version None)
Quarter: 2007Q1

REPORT INFORMATION
  Report Type: 
  Country: None (occurrence: None)
  Receive Date: 20070319
  Receipt Date: 20070314
  Transmission Date: 20070707
  Serious: Yes (Other)
  Sender: FDA-Public Use
  Company Number: US-GLAXOSMITHKLINE-A0643438A

PATIENT
  Sex: Female

DRUGS (2)
  1. LAMICTAL [Suspect]
     Indication: EPILEPSY
     Dosage: 200MG TWICE PER DAY
     Route: 048
  2. PRIMIDONE [Suspect]
     Indication: EPILEPSY
     Dosage: 250MG FOUR TIMES PER DAY
     Route: 048

REACTIONS (1)
  - GRAND MAL CONVULSION [None]
